FAERS Safety Report 22294483 (Version 2)
Quarter: 2024Q2

REPORT INFORMATION
  Report Type: Spontaneous
  Country: US (occurrence: US)
  Receive Date: 20230508
  Receipt Date: 20240415
  Transmission Date: 20240716
  Serious: Yes (Hospitalization, Other)
  Sender: FDA-Public Use
  Company Number: US-ASTELLAS-2023US010350

PATIENT
  Age: 76 Year
  Sex: Male

DRUGS (4)
  1. LEXISCAN [Suspect]
     Active Substance: REGADENOSON
     Indication: Cardiac stress test
     Dosage: SINGLE-DOSE SYRINGE 0.4 MG/5 ML, OTHER (ONCE)
     Route: 065
     Dates: start: 20230327, end: 20230327
  2. LEXISCAN [Suspect]
     Active Substance: REGADENOSON
     Indication: Cardiac stress test
     Dosage: SINGLE-DOSE SYRINGE 0.4 MG/5 ML, OTHER (ONCE)
     Route: 065
     Dates: start: 20230327, end: 20230327
  3. LEXISCAN [Suspect]
     Active Substance: REGADENOSON
     Indication: Cardiac stress test
     Dosage: SINGLE-DOSE SYRINGE 0.4 MG/5 ML, OTHER (ONCE)
     Route: 065
     Dates: start: 20230327, end: 20230327
  4. LEXISCAN [Suspect]
     Active Substance: REGADENOSON
     Indication: Cardiac stress test
     Dosage: SINGLE-DOSE SYRINGE 0.4 MG/5 ML, OTHER (ONCE)
     Route: 065
     Dates: start: 20230327, end: 20230327

REACTIONS (1)
  - Syncope [Unknown]

NARRATIVE: CASE EVENT DATE: 20230327
